FAERS Safety Report 4986360-1 (Version None)
Quarter: 2006Q2

REPORT INFORMATION
  Report Type: 
  Country: None (occurrence: None)
  Receive Date: 20060428
  Receipt Date: 20051018
  Transmission Date: 20061013
  Serious: Yes (Hospitalization)
  Sender: FDA-Public Use
  Company Number: JP-JPN-A20052506

PATIENT
  Age: 37 Year
  Sex: Female

DRUGS (3)
  1. PAXIL [Suspect]
     Indication: DEPRESSION
     Dosage: 20MG PER DAY
     Route: 048
  2. LORAZEPAM [Suspect]
     Indication: ANXIETY
     Dosage: 1MG TWICE PER DAY
     Route: 048
  3. MYSLEE [Suspect]
     Indication: INSOMNIA
     Dosage: 5MG PER DAY
     Route: 048

REACTIONS (4)
  - ABORTION EARLY [None]
  - ABORTION SPONTANEOUS [None]
  - DIZZINESS [None]
  - DRUG EXPOSURE DURING PREGNANCY [None]
